FAERS Safety Report 21471619 (Version 1)
Quarter: 2022Q4

REPORT INFORMATION
  Report Type: Spontaneous
  Country: US (occurrence: None)
  Receive Date: 20221017
  Receipt Date: 20221017
  Transmission Date: 20230113
  Serious: Yes (Other)
  Sender: FDA-Public Use
  Company Number: None

PATIENT
  Age: 76 Year
  Sex: Female
  Weight: 88.9 kg

DRUGS (10)
  1. URSODIOL [Suspect]
     Active Substance: URSODIOL
     Indication: Cholelithiasis
     Dosage: FREQUENCY : TWICE A DAY;?
     Route: 048
     Dates: end: 20220211
  2. PROTONIX [Concomitant]
     Active Substance: PANTOPRAZOLE SODIUM
  3. ATORVASTATIN [Concomitant]
     Active Substance: ATORVASTATIN
  4. ASPIRIN [Concomitant]
     Active Substance: ASPIRIN
  5. GABAPENTIN [Concomitant]
     Active Substance: GABAPENTIN
  6. AMLODIPINE [Concomitant]
     Active Substance: AMLODIPINE BESYLATE
  7. PEPCID [Concomitant]
     Active Substance: FAMOTIDINE
  8. TYLENOL [Concomitant]
     Active Substance: ACETAMINOPHEN
  9. MIRALAX [Concomitant]
     Active Substance: POLYETHYLENE GLYCOL 3350
  10. L - LYSINE [Concomitant]

REACTIONS (8)
  - Drug ineffective [None]
  - Burning sensation [None]
  - Pain [None]
  - Swelling [None]
  - Stomatitis [None]
  - Gingival disorder [None]
  - Tongue disorder [None]
  - Lip disorder [None]

NARRATIVE: CASE EVENT DATE: 20220301
